FAERS Safety Report 21974448 (Version 2)
Quarter: 2023Q1

REPORT INFORMATION
  Report Type: Spontaneous
  Country: US (occurrence: US)
  Receive Date: 20230209
  Receipt Date: 20230220
  Transmission Date: 20230418
  Serious: Yes (Other)
  Sender: FDA-Public Use
  Company Number: US-ALLERGAN-2303366US

PATIENT
  Sex: Female

DRUGS (5)
  1. OZURDEX [Suspect]
     Active Substance: DEXAMETHASONE
     Indication: Product used for unknown indication
     Dosage: 0.7 MG, SINGLE
     Route: 031
  2. BEOVU [Concomitant]
     Active Substance: BROLUCIZUMAB-DBLL
     Dates: start: 202104
  3. PRED FORTE [Concomitant]
     Active Substance: PREDNISOLONE ACETATE
  4. EYLEA [Concomitant]
     Active Substance: AFLIBERCEPT
     Dates: start: 201905
  5. VABYSMO [Concomitant]
     Active Substance: FARICIMAB-SVOA

REACTIONS (2)
  - Detachment of retinal pigment epithelium [Unknown]
  - Visual impairment [Unknown]
